FAERS Safety Report 21696206 (Version 2)
Quarter: 2023Q1

REPORT INFORMATION
  Report Type: Other
  Country: FR (occurrence: None)
  Receive Date: 20221207
  Receipt Date: 20230211
  Transmission Date: 20230417
  Serious: Yes (Other)
  Sender: FDA-Public Use
  Company Number: FR-ROCHE-3231452

PATIENT
  Age: 43 Year
  Sex: Female

DRUGS (1)
  1. ALECTINIB [Suspect]
     Active Substance: ALECTINIB
     Indication: Adenocarcinoma
     Route: 065

REACTIONS (1)
  - Lymphangitis [Unknown]
